APPROVED DRUG PRODUCT: HYDROCODONE BITARTRATE AND ACETAMINOPHEN
Active Ingredient: ACETAMINOPHEN; HYDROCODONE BITARTRATE
Strength: 500MG;5MG
Dosage Form/Route: CAPSULE;ORAL
Application: A088956 | Product #001
Applicant: MALLINCKRODT CHEMICAL INC
Approved: Jul 19, 1985 | RLD: No | RS: No | Type: DISCN